FAERS Safety Report 9833388 (Version 5)
Quarter: 2014Q1

REPORT INFORMATION
  Report Type: Spontaneous
  Country: CA (occurrence: CA)
  Receive Date: 20140121
  Receipt Date: 20140320
  Transmission Date: 20141002
  Serious: Yes (Other)
  Sender: FDA-Public Use
  Company Number: CA-JNJFOC-20140106507

PATIENT
  Sex: Female

DRUGS (5)
  1. IMODIUM [Suspect]
     Route: 065
  2. IMODIUM [Suspect]
     Indication: PRODUCT USED FOR UNKNOWN INDICATION
     Route: 065
  3. IMODIUM LIQUI GEL [Suspect]
     Indication: PRODUCT USED FOR UNKNOWN INDICATION
     Route: 065
  4. IMODIUM INSTANT [Suspect]
     Indication: PRODUCT USED FOR UNKNOWN INDICATION
     Route: 065
  5. CODEINE [Concomitant]
     Route: 065

REACTIONS (4)
  - Surgery [Unknown]
  - Wrong technique in drug usage process [Unknown]
  - Therapeutic response decreased [Unknown]
  - Constipation [Not Recovered/Not Resolved]
